FAERS Safety Report 6305601-1 (Version None)
Quarter: 2009Q3

REPORT INFORMATION
  Report Type: 
  Country: None (occurrence: None)
  Receive Date: 20090806
  Receipt Date: 20090723
  Transmission Date: 20100115
  Serious: Yes (Hospitalization)
  Sender: FDA-Public Use
  Company Number: 2009-01222

PATIENT
  Age: 65 Year
  Sex: Female
  Weight: 58.7 kg

DRUGS (15)
  1. VELCADE [Suspect]
     Indication: MULTIPLE MYELOMA
     Dosage: INTRAVENOUS
     Route: 042
     Dates: start: 20090317, end: 20090327
  2. IDARUBICIN HCL [Suspect]
     Indication: MULTIPLE MYELOMA
     Dosage: ORAL
     Route: 048
     Dates: start: 20090320, end: 20090321
  3. MELPHALAN(MELPHALAN) VIAL [Suspect]
     Indication: MULTIPLE MYELOMA
     Dosage: INTRAVENOUS
     Route: 042
     Dates: start: 20090320, end: 20090320
  4. LANSOPRAZOLE [Concomitant]
  5. CANDESARTAN CILEXETIL [Concomitant]
  6. CLARITHROMYCIN [Concomitant]
  7. MORPHINE SULFATE INJ [Concomitant]
  8. AQUEOS CREAM (PARAFFIN, LIQUID, EMULSIFYING WAX, WHITE SOFT PARAFFIN) [Concomitant]
  9. ACYCLOVIR [Concomitant]
  10. METOCLOPRAMIDE [Concomitant]
  11. SENNA (SENNA) [Concomitant]
  12. MOVICOL (SODIUM BICARBONATE, SODIUM CHLORIDE, MACROGOL, POTASSIUM CHLO [Concomitant]
  13. FLUOXETINE [Concomitant]
  14. FLUCONAZOLE [Concomitant]
  15. TRAMADOL HCL [Concomitant]

REACTIONS (5)
  - BACK PAIN [None]
  - CONSTIPATION [None]
  - DEHYDRATION [None]
  - NAUSEA [None]
  - VOMITING [None]
